FAERS Safety Report 8093666-9 (Version None)
Quarter: 2012Q1

REPORT INFORMATION
  Report Type: 
  Country: None (occurrence: None)
  Receive Date: 20120129
  Receipt Date: 20111028
  Transmission Date: 20120608
  Serious: No
  Sender: FDA-Public Use
  Company Number: US-ABBOTT-11P-163-0859955-00

PATIENT

DRUGS (1)
  1. HUMIRA [Suspect]
     Indication: PRODUCT USED FOR UNKNOWN INDICATION
     Dates: start: 20110401

REACTIONS (4)
  - NERVOUS SYSTEM DISORDER [None]
  - MALAISE [None]
  - MUSCLE SPASMS [None]
  - INFLUENZA LIKE ILLNESS [None]
